FAERS Safety Report 11115148 (Version 1)
Quarter: 2015Q2

REPORT INFORMATION
  Report Type: Report from Study
  Country: US (occurrence: None)
  Receive Date: 20150513
  Receipt Date: 20150513
  Transmission Date: 20150821
  Serious: Yes (Hospitalization)
  Sender: FDA-Public Use
  Company Number: 2015UCU075000121

PATIENT
  Age: 50 Year
  Sex: Male
  Weight: 102.51 kg

DRUGS (34)
  1. MUPIROCIN CALCIUM. [Concomitant]
     Active Substance: MUPIROCIN CALCIUM
  2. TIZANIDINE (TIZANIDINE) [Concomitant]
     Active Substance: TIZANIDINE
  3. METHYLPREDNISOLONE. [Concomitant]
     Active Substance: METHYLPREDNISOLONE
  4. CYCLOBENZAPRINE [Concomitant]
     Active Substance: CYCLOBENZAPRINE
  5. PROTONIX [Concomitant]
     Active Substance: PANTOPRAZOLE SODIUM
  6. MESALAMINE. [Concomitant]
     Active Substance: MESALAMINE
  7. PREDNISONE. [Concomitant]
     Active Substance: PREDNISONE
  8. PROBIOTIC /07343501/ [Concomitant]
  9. LYRICA [Concomitant]
     Active Substance: PREGABALIN
  10. ALOSETRON [Concomitant]
     Active Substance: ALOSETRON
  11. ETODOLAC. [Suspect]
     Active Substance: ETODOLAC
  12. ONDANSETRON [Concomitant]
     Active Substance: ONDANSETRON
  13. HYDROCODONE [Concomitant]
     Active Substance: HYDROCODONE
  14. SULFASALAZINE. [Concomitant]
     Active Substance: SULFASALAZINE
  15. MELOXICAM. [Concomitant]
     Active Substance: MELOXICAM
  16. FOLIC ACID. [Concomitant]
     Active Substance: FOLIC ACID
  17. LEUCOVORIN CALCIUM. [Concomitant]
     Active Substance: LEUCOVORIN CALCIUM
  18. SOLU-MEDROL [Concomitant]
     Active Substance: METHYLPREDNISOLONE SODIUM SUCCINATE
  19. DILAUDID [Concomitant]
     Active Substance: HYDROMORPHONE HYDROCHLORIDE
  20. BALSALAZIDE [Concomitant]
     Active Substance: BALSALAZIDE
  21. MOXIFLOXACIN [Concomitant]
     Active Substance: MOXIFLOXACIN
  22. BUDESONIDE. [Concomitant]
     Active Substance: BUDESONIDE
  23. AZATHIOPRINE. [Concomitant]
     Active Substance: AZATHIOPRINE
  24. VEDOLIZUMAB [Concomitant]
     Active Substance: VEDOLIZUMAB
  25. MILK THISTLE /07948501/ [Concomitant]
  26. CIMZIA [Suspect]
     Active Substance: CERTOLIZUMAB PEGOL
     Dates: start: 20091118, end: 20100505
  27. OXYCODONE [Concomitant]
     Active Substance: OXYCODONE
  28. METRONIDAZOLE. [Concomitant]
     Active Substance: METRONIDAZOLE
  29. METHOTREXATE [Concomitant]
     Active Substance: METHOTREXATE
  30. INFLIXIMAB [Concomitant]
     Active Substance: INFLIXIMAB
  31. OMEPRAZOLE. [Concomitant]
     Active Substance: OMEPRAZOLE
  32. KLONOPIN [Concomitant]
     Active Substance: CLONAZEPAM
  33. ADALIMUMAB [Concomitant]
     Active Substance: ADALIMUMAB
  34. ZYRTEC [Concomitant]
     Active Substance: CETIRIZINE HYDROCHLORIDE

REACTIONS (4)
  - Frequent bowel movements [None]
  - Large intestinal ulcer [None]
  - Small intestine ulcer [None]
  - Abdominal pain [None]

NARRATIVE: CASE EVENT DATE: 20141110
